FAERS Safety Report 9008476 (Version 3)
Quarter: 2013Q1

REPORT INFORMATION
  Report Type: Spontaneous
  Country: US (occurrence: None)
  Receive Date: 20121227
  Receipt Date: 20130214
  Transmission Date: 20140127
  Serious: Yes (Hospitalization)
  Sender: FDA-Public Use
  Company Number: 2011000088

PATIENT
  Age: 72 Year
  Sex: Female

DRUGS (11)
  1. TARCEVA (ERLOTINIB HYDROCHLORIDE) TABLET [Suspect]
     Indication: LUNG CARCINOMA CELL TYPE UNSPECIFIED STAGE 0
     Dosage: UID/QD
     Route: 048
     Dates: start: 20101222
  2. LEVAQUIN (LEVOFLOXACIN) [Concomitant]
  3. DONEPEZIL (DONEPEZIL) [Concomitant]
  4. ALENDRONATE (ALENDRONATE SODIUM) [Concomitant]
  5. PREDNISONE (PREDNISONE) [Concomitant]
  6. PRAVASTATIN (PRAVASTATIN) [Concomitant]
  7. ASPIRIN (ACETYLSALICYLIC ACID) [Concomitant]
  8. METOPROLOL (METOPROLOL) [Concomitant]
  9. METFORMIN (METFORMIN) [Concomitant]
  10. LOVENOX (ENOXAPARIN SODIUM) [Concomitant]
  11. INSULIN (INSULIN) [Concomitant]

REACTIONS (4)
  - Chronic obstructive pulmonary disease [None]
  - Bronchitis [None]
  - Pneumonia [None]
  - Diarrhoea [None]
